FAERS Safety Report 6292643-8 (Version None)
Quarter: 2009Q3

REPORT INFORMATION
  Report Type: 
  Country: None (occurrence: None)
  Receive Date: 20090731
  Receipt Date: 20090728
  Transmission Date: 20100115
  Serious: Yes (Hospitalization)
  Sender: FDA-Public Use
  Company Number: US-AMGEN-US319433

PATIENT
  Sex: Female

DRUGS (13)
  1. SENSIPAR [Suspect]
     Indication: HYPERPARATHYROIDISM SECONDARY
     Route: 048
     Dates: start: 20060605, end: 20081207
  2. NEURONTIN [Suspect]
  3. RENAGEL [Concomitant]
  4. VITAMIN E [Concomitant]
  5. ASPIRIN [Concomitant]
  6. FISH OIL [Concomitant]
  7. SYNTHROID [Concomitant]
  8. ZANTAC [Concomitant]
  9. MIDODRINE HYDROCHLORIDE [Concomitant]
  10. SIMVASTATIN [Concomitant]
  11. IMDUR [Concomitant]
  12. COMBIVENT [Concomitant]
  13. SEPTRA [Concomitant]

REACTIONS (3)
  - CHRONIC OBSTRUCTIVE PULMONARY DISEASE [None]
  - RESPIRATORY FAILURE [None]
  - UNRESPONSIVE TO STIMULI [None]
